FAERS Safety Report 8055848 (Version 3)
Quarter: 2012Q4

REPORT INFORMATION
  Report Type: 
  Country: DK (occurrence: DK)
  Receive Date: 20110726
  Receipt Date: 20121206
  Transmission Date: 20130627
  Serious: Yes (Hospitalization)
  Sender: FDA-Public Use
  Company Number: PHHY2011DK65635

PATIENT
  Age: 61 Year
  Sex: Male

DRUGS (1)
  1. AMOXICILLIN [Suspect]
     Indication: ARTHROPOD BITE
     Dosage: 375 mg, BID
     Route: 048

REACTIONS (15)
  - Ventricular failure [Recovered/Resolved]
  - Back pain [Recovered/Resolved]
  - Hepatitis [Recovered/Resolved]
  - Abdominal pain [Recovered/Resolved]
  - Fatigue [Recovered/Resolved]
  - Decreased appetite [Recovered/Resolved]
  - Jaundice [Recovered/Resolved]
  - Pruritus [Recovered/Resolved]
  - Chromaturia [Recovered/Resolved]
  - Faeces discoloured [Recovered/Resolved]
  - Waist circumference increased [Recovered/Resolved]
  - Hepatic enzyme increased [Recovered/Resolved]
  - Hepatic pain [Recovered/Resolved]
  - Hiccups [Recovered/Resolved]
  - Disturbance in attention [Unknown]
